FAERS Safety Report 4364933-7 (Version None)
Quarter: 2004Q2

REPORT INFORMATION
  Report Type: 
  Country: None (occurrence: None)
  Receive Date: 20040524
  Receipt Date: 19991221
  Transmission Date: 20050107
  Serious: Yes (Congenital Anomaly)
  Sender: FDA-Public Use
  Company Number: PERIO-1999-0501

PATIENT

DRUGS (4)
  1. PERIOSTAT [Suspect]
     Indication: PERIODONTAL DISEASE
     Dosage: 20 MG, BID, PER ORAL
     Route: 048
     Dates: start: 19991116, end: 19991216
  2. PERIOSTAT [Suspect]
     Indication: PERIODONTITIS
     Dosage: 20 MG, BID, PER ORAL
     Route: 048
     Dates: start: 19991116, end: 19991216
  3. MIACALCIN [Concomitant]
  4. MULTIVITAMIN [Concomitant]

REACTIONS (1)
  - DYSGEUSIA [None]
